FAERS Safety Report 21333012 (Version 1)
Quarter: 2022Q3

REPORT INFORMATION
  Report Type: Other
  Country: ES (occurrence: None)
  Receive Date: 20220914
  Receipt Date: 20220914
  Transmission Date: 20221026
  Serious: Yes (Other)
  Sender: FDA-Public Use
  Company Number: ES-ROCHE-3179371

PATIENT
  Age: 74 Year
  Sex: Female

DRUGS (1)
  1. TOCILIZUMAB [Suspect]
     Active Substance: TOCILIZUMAB
     Indication: Endocrine ophthalmopathy
     Dosage: TOCILIZUMAB WAS ADMINISTERED INTRAVENOUSLY AT A DOSE OF 8 MG/KG ON A MONTHLY BASIS UNTIL TED BECAME
     Route: 042

REACTIONS (3)
  - Neutropenia [Unknown]
  - Blood cholesterol increased [Unknown]
  - Off label use [Unknown]
